FAERS Safety Report 6340125-7 (Version None)
Quarter: 2009Q3

REPORT INFORMATION
  Report Type: 
  Country: None (occurrence: None)
  Receive Date: 20090902
  Receipt Date: 20090826
  Transmission Date: 20100115
  Serious: Yes (Hospitalization)
  Sender: FDA-Public Use
  Company Number: CERZ-1000896

PATIENT
  Age: 60 Year
  Sex: Male
  Weight: 129 kg

DRUGS (2)
  1. CEREZYME [Suspect]
     Indication: GAUCHER'S DISEASE
     Dosage: 30 U/KG, Q2W; INTRAVENOUS; 60 U/KG, Q2W; INTRAVENOUS
     Route: 042
     Dates: end: 20090701
  2. CEREZYME [Suspect]
     Indication: GAUCHER'S DISEASE
     Dosage: 30 U/KG, Q2W; INTRAVENOUS; 60 U/KG, Q2W; INTRAVENOUS
     Route: 042
     Dates: start: 20090713

REACTIONS (4)
  - FALL [None]
  - HYPERTENSION [None]
  - LOSS OF CONSCIOUSNESS [None]
  - MALAISE [None]
